FAERS Safety Report 5080807-0 (Version None)
Quarter: 2006Q3

REPORT INFORMATION
  Report Type: 
  Country: None (occurrence: None)
  Receive Date: 20060809
  Receipt Date: 20060807
  Transmission Date: 20061208
  Serious: Yes (Life-Threatening, Hospitalization)
  Sender: FDA-Public Use
  Company Number: DEWYE260119JUL06

PATIENT
  Age: 51 Year
  Sex: Male

DRUGS (1)
  1. RAPAMUNE [Suspect]
     Indication: PROPHYLAXIS AGAINST TRANSPLANT REJECTION
     Dosage: 2 MG ORAL
     Route: 048
     Dates: start: 20051110, end: 20060718

REACTIONS (2)
  - PULMONARY EMBOLISM [None]
  - VENA CAVA THROMBOSIS [None]
